FAERS Safety Report 6749212-2 (Version None)
Quarter: 2010Q2

REPORT INFORMATION
  Report Type: 
  Country: None (occurrence: None)
  Receive Date: 20100601
  Receipt Date: 20100428
  Transmission Date: 20101027
  Serious: No
  Sender: FDA-Public Use
  Company Number: US-BAYER-201014936BCC

PATIENT
  Age: 95 Year
  Sex: Female
  Weight: 82 kg

DRUGS (3)
  1. ALEVE [Suspect]
     Indication: PAIN IN EXTREMITY
     Dosage: UNIT DOSE: 220 MG
     Route: 048
     Dates: start: 20100401
  2. UNKNOWN GENERIC BLOOD PRESSURE [Concomitant]
     Route: 065
  3. HEART MEDICATIONS [Concomitant]
     Route: 065

REACTIONS (1)
  - PAIN IN EXTREMITY [None]
